FAERS Safety Report 24675434 (Version 1)
Quarter: 2024Q4

REPORT INFORMATION
  Report Type: Report from Study
  Country: DE (occurrence: DE)
  Receive Date: 20241128
  Receipt Date: 20241128
  Transmission Date: 20250114
  Serious: Yes (Other)
  Sender: DAIICHI
  Company Number: DE-ASTRAZENECA-202411GLO014316DE

PATIENT
  Sex: Female
  Weight: 68 kg

DRUGS (5)
  1. ENHERTU [Suspect]
     Active Substance: FAM-TRASTUZUMAB DERUXTECAN-NXKI
     Indication: Product used for unknown indication
     Dosage: 5.4 MG
     Route: 042
     Dates: start: 20240830
  2. AKYNZEO [FOSNETUPITANT CHLORIDE HYDROCHLORIDE;PALONOSETRON HYDROCHLORI [Concomitant]
     Indication: Nausea
     Dosage: 300 MILLIGRAM
     Route: 048
     Dates: start: 20240830
  3. DEXAMETHASONE SODIUM SUCCINATE [Concomitant]
     Active Substance: DEXAMETHASONE SODIUM SUCCINATE
     Indication: Antiinflammatory therapy
     Dosage: 12 MILLIGRAM
     Route: 042
     Dates: start: 20240830
  4. PANTOPRAZOLE AFT [Concomitant]
     Indication: Prophylaxis
     Dosage: 10 MILLIGRAM
     Route: 048
  5. PANTOPRAZOLE AFT [Concomitant]
     Indication: Gastric pH increased

REACTIONS (1)
  - Cardiac arrest [Recovered/Resolved]

NARRATIVE: CASE EVENT DATE: 20241025
